FAERS Safety Report 5311972-5 (Version None)
Quarter: 2007Q2

REPORT INFORMATION
  Report Type: 
  Country: None (occurrence: None)
  Receive Date: 20070430
  Receipt Date: 20060508
  Transmission Date: 20071010
  Serious: No
  Sender: FDA-Public Use
  Company Number: 2006UW08965

PATIENT
  Age: 79 Year
  Sex: Female
  Weight: 65.3 kg

DRUGS (3)
  1. NEXIUM [Suspect]
     Indication: GASTROOESOPHAGEAL REFLUX DISEASE
     Route: 048
  2. METHTREXATE [Concomitant]
  3. HUMIRA [Concomitant]

REACTIONS (3)
  - ABDOMINAL DISTENSION [None]
  - ABNORMAL FAECES [None]
  - BOWEL MOVEMENT IRREGULARITY [None]
